FAERS Safety Report 9057980 (Version 1)
Quarter: 2013Q1

REPORT INFORMATION
  Report Type: Spontaneous
  Country: US (occurrence: None)
  Receive Date: 20130204
  Receipt Date: 20130204
  Transmission Date: 20140127
  Serious: No
  Sender: FDA-Public Use
  Company Number: None

PATIENT
  Sex: 0

DRUGS (1)
  1. LIDOCAINE [Suspect]
     Indication: NAIL OPERATION

REACTIONS (2)
  - Inadequate analgesia [None]
  - Drug ineffective [None]
